FAERS Safety Report 5114620-2 (Version None)
Quarter: 2006Q3

REPORT INFORMATION
  Report Type: 
  Country: None (occurrence: None)
  Receive Date: 20060921
  Receipt Date: 20060908
  Transmission Date: 20061208
  Serious: Yes (Other)
  Sender: FDA-Public Use
  Company Number: 20060189

PATIENT

DRUGS (1)
  1. EPINEPHRINE [Suspect]
     Indication: EYE IRRIGATION
     Dosage: IRRIGATION SOLN INTRAOCULAR
     Route: 031
     Dates: start: 20060901, end: 20060901

REACTIONS (4)
  - CORNEAL TRANSPLANT [None]
  - OCULAR VASCULAR DISORDER [None]
  - SHOCK [None]
  - TRANSPLANT FAILURE [None]
